FAERS Safety Report 10220150 (Version 4)
Quarter: 2014Q3

REPORT INFORMATION
  Report Type: Report from Study
  Country: CA (occurrence: CA)
  Receive Date: 20140605
  Receipt Date: 20140827
  Transmission Date: 20150326
  Serious: Yes (Life-Threatening, Hospitalization)
  Sender: FDA-Public Use
  Company Number: CA-CELGENEUS-028-C5013-14055843

PATIENT
  Age: 79 Year
  Sex: Male
  Weight: 83.1 kg

DRUGS (49)
  1. CC-5013 [Suspect]
     Active Substance: LENALIDOMIDE
     Route: 048
     Dates: start: 20140707
  2. PEGYLATED INTERFERON ALPHA NOS [Concomitant]
     Active Substance: PEGINTERFERON ALFA-2A OR PEGINTERFERON ALFA-2B
     Indication: CONSTIPATION
     Dosage: 17 GRAM
     Route: 048
     Dates: start: 20140206
  3. DIPHENHYDRAMINE [Concomitant]
     Active Substance: DIPHENHYDRAMINE
     Indication: TRANSFUSION
     Dosage: 25-50MG
     Route: 041
     Dates: start: 20131031
  4. VITAMIN K [Concomitant]
     Active Substance: PHYTONADIONE
     Dosage: 5 MILLIGRAM
     Route: 048
     Dates: start: 20140617, end: 20140617
  5. NORMAL SALINE WITH POTASSIUM CHLORIDE [Concomitant]
     Indication: HYPOKALAEMIA
     Dosage: 40 MEQ/100CC
     Route: 041
     Dates: start: 20140531, end: 20140602
  6. FUROSEMIDE. [Concomitant]
     Active Substance: FUROSEMIDE
     Dosage: 20 MILLIGRAM
     Route: 041
     Dates: start: 20140605, end: 20140605
  7. IMODIUM [Concomitant]
     Active Substance: LOPERAMIDE HYDROCHLORIDE
     Indication: DIARRHOEA
     Route: 048
     Dates: start: 20140603, end: 20140604
  8. MICAFUNGIN SODIUM [Concomitant]
     Active Substance: MICAFUNGIN SODIUM
     Indication: ORAL FUNGAL INFECTION
     Dosage: 100 MILLIGRAM
     Route: 041
     Dates: start: 20140609, end: 20140609
  9. SALBUTAMOL [Concomitant]
     Active Substance: ALBUTEROL
     Indication: COUGH
     Dosage: 2 PUFFS
     Route: 055
     Dates: start: 20140625, end: 20140630
  10. CRESTOR [Concomitant]
     Active Substance: ROSUVASTATIN CALCIUM
     Indication: DYSLIPIDAEMIA
     Dosage: 5 MILLIGRAM
     Route: 048
     Dates: start: 1998
  11. POLYETHYLENE GLYCOL 3350. [Concomitant]
     Active Substance: POLYETHYLENE GLYCOL 3350
     Dosage: 17 GRAM
     Route: 048
     Dates: start: 20140607
  12. CODEINE [Concomitant]
     Active Substance: CODEINE
     Indication: COUGH
     Dosage: 30 MILLIGRAM
     Route: 048
     Dates: start: 20140622, end: 20140624
  13. DIMENHYDRINATE. [Concomitant]
     Active Substance: DIMENHYDRINATE
     Indication: NAUSEA
     Dosage: 400 MILLIGRAM
     Route: 048
     Dates: start: 20140601
  14. MAXERAN [Concomitant]
     Active Substance: METOCLOPRAMIDE HYDROCHLORIDE
     Indication: NAUSEA
     Dosage: 10-20MG
     Route: 048
     Dates: start: 20140601, end: 20140609
  15. OXAZEPAM. [Concomitant]
     Active Substance: OXAZEPAM
     Indication: INSOMNIA
     Dosage: 15 MILLIGRAM
     Route: 048
     Dates: start: 20131102
  16. CC-5013 [Suspect]
     Active Substance: LENALIDOMIDE
     Indication: ACUTE MYELOID LEUKAEMIA
     Dosage: 50 MILLIGRAM
     Route: 048
     Dates: start: 20131108, end: 20131128
  17. CC-5013 [Suspect]
     Active Substance: LENALIDOMIDE
     Dosage: 50 MILLIGRAM
     Route: 048
     Dates: start: 20140512, end: 20140528
  18. AZACITIDINE INJECTABLE [Suspect]
     Active Substance: AZACITIDINE
     Route: 058
     Dates: start: 20140630
  19. VITAMIN K [Concomitant]
     Active Substance: PHYTONADIONE
     Dosage: 10 MILLIGRAM
     Route: 048
     Dates: start: 20140609, end: 20140609
  20. FUROSEMIDE. [Concomitant]
     Active Substance: FUROSEMIDE
     Indication: FLUID OVERLOAD
     Dosage: 20 MILLIGRAM
     Route: 041
     Dates: start: 20140603, end: 20140603
  21. FUROSEMIDE. [Concomitant]
     Active Substance: FUROSEMIDE
     Dosage: 20 MILLIGRAM
     Route: 041
     Dates: start: 20140609, end: 20140609
  22. CEPHALEXIN. [Concomitant]
     Active Substance: CEPHALEXIN
     Indication: CELLULITIS
     Dosage: 1500 MILLIGRAM
     Route: 041
     Dates: start: 20140613, end: 20140621
  23. ACETAMINOPHEN. [Concomitant]
     Active Substance: ACETAMINOPHEN
     Indication: TRANSFUSION
     Route: 048
     Dates: start: 20131031
  24. AZACITIDINE INJECTABLE [Suspect]
     Active Substance: AZACITIDINE
     Dosage: 75 MILLIGRAM/SQ. METER
     Route: 058
     Dates: start: 20140505, end: 20140511
  25. CRESTOR [Concomitant]
     Active Substance: ROSUVASTATIN CALCIUM
     Indication: HYPERCHOLESTEROLAEMIA
  26. POLYETHYLENE GLYCOL 3350. [Concomitant]
     Active Substance: POLYETHYLENE GLYCOL 3350
     Indication: CONSTIPATION
     Dosage: 17 GRAM
     Route: 048
     Dates: start: 20140206, end: 20140606
  27. VITAMIN K [Concomitant]
     Active Substance: PHYTONADIONE
     Indication: INTERNATIONAL NORMALISED RATIO INCREASED
     Dosage: 5 MILLIGRAM
     Route: 048
     Dates: start: 20140531, end: 20140531
  28. VITAMIN K [Concomitant]
     Active Substance: PHYTONADIONE
     Dosage: 10 MILLIGRAM
     Route: 048
     Dates: start: 20140612, end: 20140612
  29. FUROSEMIDE. [Concomitant]
     Active Substance: FUROSEMIDE
     Dosage: 20 MILLIGRAM
     Route: 041
     Dates: start: 20140606, end: 20140607
  30. FLUCONAZOLE. [Concomitant]
     Active Substance: FLUCONAZOLE
     Indication: ORAL FUNGAL INFECTION
     Dosage: 400 MILLIGRAM
     Route: 048
     Dates: start: 20140611, end: 20140616
  31. AZACITIDINE INJECTABLE [Suspect]
     Active Substance: AZACITIDINE
     Indication: ACUTE MYELOID LEUKAEMIA
     Dosage: 75 MILLIGRAM/SQ. METER
     Route: 058
     Dates: start: 20131101, end: 20131107
  32. CETIRIZINE HYDROCHLORIDE. [Concomitant]
     Active Substance: CETIRIZINE HYDROCHLORIDE
     Indication: PROPHYLAXIS
     Dosage: 10 MILLIGRAM
     Route: 048
     Dates: start: 20140331
  33. MAGNESIUM SULFATE [Concomitant]
     Active Substance: MAGNESIUM SULFATE
     Indication: HYPOMAGNESAEMIA
     Dosage: 1 GRAM
     Route: 041
     Dates: start: 20140530, end: 20140530
  34. FUROSEMIDE. [Concomitant]
     Active Substance: FUROSEMIDE
     Dosage: 20 MILLIGRAM
     Route: 041
     Dates: start: 20140610, end: 20140610
  35. SODIUM PHOSPHATE [Concomitant]
     Active Substance: SODIUM PHOSPHATE
     Indication: HYPOPHOSPHATAEMIA
     Dosage: 15 MILLIMOLE
     Route: 041
     Dates: start: 20140606, end: 20140606
  36. ZOFRAN [Concomitant]
     Active Substance: ONDANSETRON HYDROCHLORIDE
     Indication: NAUSEA
     Dosage: 24 MILLIGRAM
     Route: 041
     Dates: start: 20140602, end: 20140609
  37. DIGOXIN. [Concomitant]
     Active Substance: DIGOXIN
     Indication: ATRIAL FIBRILLATION
     Dosage: .25 MILLIGRAM
     Route: 048
     Dates: start: 20140617, end: 20140617
  38. DIGOXIN. [Concomitant]
     Active Substance: DIGOXIN
     Dosage: .125 MILLIGRAM
     Route: 048
     Dates: start: 20140617, end: 20140620
  39. SENOKOT [Concomitant]
     Active Substance: SENNOSIDES
     Indication: CONSTIPATION
     Dosage: 4 TABLET
     Route: 048
     Dates: start: 20140609, end: 20140620
  40. AZACITIDINE INJECTABLE [Suspect]
     Active Substance: AZACITIDINE
     Route: 058
     Dates: start: 2014, end: 20140616
  41. AMOXICILLIN/CLAVULANATE POTASSIUM [Concomitant]
     Active Substance: AMOXICILLIN\CLAVULANATE POTASSIUM
     Indication: SIALOADENITIS
     Dosage: 875 MILLIGRAM
     Route: 065
     Dates: start: 20140509, end: 20140519
  42. AMOXICILLIN/CLAVULANATE POTASSIUM [Concomitant]
     Active Substance: AMOXICILLIN\CLAVULANATE POTASSIUM
     Indication: CELLULITIS
  43. MAGNESIUM SULFATE [Concomitant]
     Active Substance: MAGNESIUM SULFATE
     Indication: ATRIAL FIBRILLATION
     Dosage: 1 GRAM
     Route: 048
     Dates: start: 20140606, end: 20140606
  44. VITAMIN K [Concomitant]
     Active Substance: PHYTONADIONE
     Dosage: 10 GRAM
     Route: 048
     Dates: start: 20140606, end: 20140606
  45. POTASSIUM CHLORIDE. [Concomitant]
     Active Substance: POTASSIUM CHLORIDE
     Indication: HYPOKALAEMIA
     Dosage: 2 TABLET
     Route: 048
     Dates: start: 20140605, end: 20140624
  46. CLINDAMYCIN [Concomitant]
     Active Substance: CLINDAMYCIN\CLINDAMYCIN PHOSPHATE
     Indication: CELLULITIS
     Dosage: 1800 MILLIGRAM
     Route: 048
     Dates: start: 20140612, end: 20140613
  47. ZOFRAN [Concomitant]
     Active Substance: ONDANSETRON HYDROCHLORIDE
     Dosage: 1 GRAM
     Route: 048
     Dates: start: 20140606, end: 20140606
  48. CHLORPHENIRAMINE AND HYDROCODONE [Concomitant]
     Indication: COUGH
     Dosage: 10 MILLILITER
     Route: 048
     Dates: start: 20140625, end: 20140630
  49. COLACE [Concomitant]
     Active Substance: DOCUSATE SODIUM
     Indication: CONSTIPATION
     Dosage: 200 MILLIGRAM
     Route: 048
     Dates: start: 20140609, end: 20140620

REACTIONS (3)
  - Atrial fibrillation [Recovered/Resolved]
  - Arthralgia [Recovered/Resolved]
  - Bacterial sepsis [Recovered/Resolved]

NARRATIVE: CASE EVENT DATE: 20140529
